FAERS Safety Report 4685914-X (Version None)
Quarter: 2005Q2

REPORT INFORMATION
  Report Type: 
  Country: None (occurrence: None)
  Receive Date: 20050609
  Receipt Date: 20050411
  Transmission Date: 20051028
  Serious: Yes (Death)
  Sender: FDA-Public Use
  Company Number: US-ABBOTT-05P-163-0297028-00

PATIENT
  Sex: Male

DRUGS (19)
  1. RITONAVIR SOFT GELATIN CAPSULES [Suspect]
     Indication: HIV INFECTION
     Route: 048
     Dates: start: 20041222
  2. TIPRANAVIR [Concomitant]
     Indication: HIV INFECTION
     Route: 048
     Dates: start: 20041222
  3. TRUVADA [Concomitant]
     Indication: HIV INFECTION
     Dosage: 200/300
     Route: 048
     Dates: start: 20041222
  4. FUZEON [Concomitant]
     Indication: DRUG USE FOR UNKNOWN INDICATION
     Route: 058
     Dates: start: 20041222
  5. BUPROPION HYDROCHLORIDE [Concomitant]
     Indication: DEPRESSION
     Route: 048
     Dates: start: 20040907
  6. PROMETHAZINE [Concomitant]
     Indication: DRUG USE FOR UNKNOWN INDICATION
  7. OXYCOCET [Concomitant]
     Indication: DRUG USE FOR UNKNOWN INDICATION
  8. LEVOFLOXACIN [Concomitant]
     Indication: DRUG USE FOR UNKNOWN INDICATION
  9. ALPRAZOLAM [Concomitant]
     Indication: DRUG USE FOR UNKNOWN INDICATION
  10. TRAZODONE [Concomitant]
     Indication: DRUG USE FOR UNKNOWN INDICATION
  11. DRONABINOL [Concomitant]
     Indication: DRUG USE FOR UNKNOWN INDICATION
  12. PROPRANOLOL [Concomitant]
     Indication: DRUG USE FOR UNKNOWN INDICATION
  13. METHYLPHENIDATE HCL [Concomitant]
     Indication: DRUG USE FOR UNKNOWN INDICATION
  14. MUCINEX [Concomitant]
     Indication: DRUG USE FOR UNKNOWN INDICATION
  15. SILDENAFIL CITRATE [Concomitant]
     Indication: DRUG USE FOR UNKNOWN INDICATION
  16. ACYCLOVIR [Concomitant]
     Indication: DRUG USE FOR UNKNOWN INDICATION
  17. ITRACONAZOLE [Concomitant]
     Indication: DRUG USE FOR UNKNOWN INDICATION
  18. AMOXICILLIN AND CLAVULANATE POTASSIUM [Concomitant]
     Indication: DRUG USE FOR UNKNOWN INDICATION
  19. NITROGLYCERIN [Concomitant]
     Indication: DRUG USE FOR UNKNOWN INDICATION

REACTIONS (1)
  - DRUG TOXICITY [None]
